FAERS Safety Report 15034158 (Version 1)
Quarter: 2018Q2

REPORT INFORMATION
  Report Type: Spontaneous
  Country: SE (occurrence: SE)
  Receive Date: 20180620
  Receipt Date: 20180620
  Transmission Date: 20180711
  Serious: Yes (Other)
  Sender: FDA-Public Use
  Company Number: SE-TEVA-2018-SE-907378

PATIENT
  Age: 74 Year
  Sex: Male

DRUGS (3)
  1. MEPROBAMAT [Concomitant]
     Active Substance: MEPROBAMATE
     Route: 065
  2. OMEPRAZOL [Concomitant]
     Active Substance: OMEPRAZOLE
     Dosage: 75 MILLIGRAM DAILY; TAKEN IN THE MORNING
     Route: 065
  3. CLOPIDOGREL [Suspect]
     Active Substance: CLOPIDOGREL BISULFATE
     Route: 048
     Dates: start: 20180605, end: 20180607

REACTIONS (8)
  - Drug dose omission [Unknown]
  - Atrial fibrillation [Unknown]
  - Product substitution issue [Unknown]
  - Feeling cold [Unknown]
  - Gastrointestinal disorder [Unknown]
  - Palpitations [Unknown]
  - Product formulation issue [Unknown]
  - Anxiety [Unknown]

NARRATIVE: CASE EVENT DATE: 20180608
